FAERS Safety Report 5699300-7 (Version None)
Quarter: 2008Q2

REPORT INFORMATION
  Report Type: 
  Country: None (occurrence: None)
  Receive Date: 20080404
  Receipt Date: 20080325
  Transmission Date: 20081010
  Serious: Yes (Other)
  Sender: FDA-Public Use
  Company Number: 08H-163-0314063-00

PATIENT
  Age: 12 Year
  Sex: Female

DRUGS (2)
  1. EPINEPHRINE [Suspect]
     Indication: ANAPHYLACTIC REACTION
     Dosage: 0.3 MG, INTRAMUSCULAR
     Route: 030
  2. ISOTONIC SODIUM CHLORIDE (SODIUM CHLORIDE) [Concomitant]

REACTIONS (1)
  - HYPOTENSION [None]
